FAERS Safety Report 19087037 (Version 1)
Quarter: 2021Q2

REPORT INFORMATION
  Report Type: Spontaneous
  Country: AT (occurrence: AT)
  Receive Date: 20210402
  Receipt Date: 20210402
  Transmission Date: 20210717
  Serious: Yes (Hospitalization, Other)
  Sender: FDA-Public Use
  Company Number: AT-PFIZER INC-2021328011

PATIENT
  Age: 65 Year
  Sex: Male
  Weight: 85 kg

DRUGS (3)
  1. FUCIDIN [FUSIDIC ACID] [Suspect]
     Active Substance: FUSIDIC ACID
     Indication: WOUND INFECTION
     Dosage: 2?2?2 P.O.
     Route: 048
     Dates: start: 20201231, end: 20210121
  2. ATORVASTATIN CALCIUM. [Suspect]
     Active Substance: ATORVASTATIN CALCIUM
     Indication: HYPERLIPIDAEMIA
     Dosage: 0?0?1 P.O. LONG?TERM THERAPY PAUSE FROM 23.01.2021
     Route: 048
     Dates: end: 20210123
  3. OSPEXINA [Concomitant]
     Indication: WOUND INFECTION
     Dosage: 1?1?1 P.O.
     Route: 048
     Dates: start: 20201231, end: 20210121

REACTIONS (4)
  - Rhabdomyolysis [Recovered/Resolved]
  - Monoplegia [Recovered/Resolved]
  - Acute kidney injury [Recovered/Resolved]
  - Muscular weakness [Recovered/Resolved]

NARRATIVE: CASE EVENT DATE: 20210108
